FAERS Safety Report 4282442-0 (Version None)
Quarter: 2004Q1

REPORT INFORMATION
  Report Type: 
  Country: None (occurrence: None)
  Receive Date: 20040116
  Receipt Date: 20031015
  Transmission Date: 20041129
  Serious: Yes (Hospitalization)
  Sender: FDA-Public Use
  Company Number: 03P-163-0237405-00

PATIENT
  Age: 61 Year
  Sex: Female

DRUGS (3)
  1. MERIDIA [Suspect]
     Dosage: 10 MG, PER ORAL
     Route: 048
     Dates: end: 20031014
  2. CYCLOBENZAPRINE HYDROCHLORIDE [Suspect]
     Dosage: PER ORAL
     Route: 048
     Dates: start: 20031014, end: 20031014
  3. NSAID'S [Concomitant]

REACTIONS (3)
  - BLOOD PRESSURE INCREASED [None]
  - DYSPNOEA [None]
  - PALPITATIONS [None]
